FAERS Safety Report 9223613 (Version 2)
Quarter: 2013Q2

REPORT INFORMATION
  Report Type: Spontaneous
  Country: SK (occurrence: SK)
  Receive Date: 20130410
  Receipt Date: 20130418
  Transmission Date: 20140414
  Serious: Yes (Life-Threatening, Hospitalization)
  Sender: FDA-Public Use
  Company Number: SK-GLAXOSMITHKLINE-B0876453A

PATIENT
  Age: 65 Year
  Sex: Male

DRUGS (7)
  1. RYTMONORM [Suspect]
     Indication: ATRIAL FIBRILLATION
     Dosage: 425MG PER DAY
     Route: 048
     Dates: start: 201212, end: 201302
  2. RYTMONORM [Suspect]
     Indication: ATRIAL FIBRILLATION
     Dosage: 225MG PER DAY
     Route: 048
     Dates: start: 201302
  3. CLOPIDOGREL BISULFATE [Concomitant]
     Dosage: 75MG PER DAY
  4. SORTIS [Concomitant]
     Dosage: 80MG PER DAY
  5. EGILOK [Concomitant]
     Dosage: 25MG TWICE PER DAY
  6. PRESTARIUM [Concomitant]
     Dosage: 5MG PER DAY
  7. FRAXIPARINE [Concomitant]
     Dosage: .8MG PER DAY

REACTIONS (3)
  - Coronary artery stenosis [Unknown]
  - Nodal rhythm [Recovered/Resolved]
  - Sinus bradycardia [Recovered/Resolved]
